FAERS Safety Report 6385721-6 (Version None)
Quarter: 2009Q4

REPORT INFORMATION
  Report Type: 
  Country: None (occurrence: None)
  Receive Date: 20091002
  Receipt Date: 20081007
  Transmission Date: 20100525
  Serious: No
  Sender: FDA-Public Use
  Company Number: US-ASTRAZENECA-2008UW21928

PATIENT
  Age: 85 Year
  Sex: Female

DRUGS (10)
  1. ARIMIDEX [Suspect]
     Route: 048
     Dates: start: 20070101
  2. SYNTHROID [Concomitant]
  3. GLIPIZIDE [Concomitant]
  4. HYZAAR [Concomitant]
     Dosage: 100-25
  5. JANUVIA [Concomitant]
  6. ASPIRIN [Concomitant]
  7. VERAPAMIL [Concomitant]
  8. METFORMIN [Concomitant]
  9. SIMVASTATIN [Concomitant]
  10. BONIVA [Concomitant]
     Dosage: 1TABLET MONTHLY

REACTIONS (1)
  - TONGUE DISORDER [None]
